FAERS Safety Report 8471556-7 (Version None)
Quarter: 2012Q2

REPORT INFORMATION
  Report Type: 
  Country: None (occurrence: None)
  Receive Date: 20120627
  Receipt Date: 20120622
  Transmission Date: 20120825
  Serious: Yes (Hospitalization)
  Sender: FDA-Public Use
  Company Number: IT-ASTRAZENECA-2012SE42050

PATIENT
  Sex: Male

DRUGS (1)
  1. BRILINTA [Suspect]
     Route: 048

REACTIONS (1)
  - LARYNGEAL OEDEMA [None]
